FAERS Safety Report 9652809 (Version 2)
Quarter: 2013Q4

REPORT INFORMATION
  Report Type: Spontaneous
  Country: US (occurrence: US)
  Receive Date: 20131029
  Receipt Date: 20131204
  Transmission Date: 20140711
  Serious: No
  Sender: FDA-Public Use
  Company Number: US-BIOGENIDEC-2013BI077452

PATIENT
  Age: 56 Year
  Sex: Female

DRUGS (14)
  1. TECFIDERA [Suspect]
     Indication: MULTIPLE SCLEROSIS
     Route: 048
     Dates: start: 20130710
  2. TECFIDERA [Suspect]
     Indication: MULTIPLE SCLEROSIS
     Route: 048
     Dates: start: 20130722
  3. LOSARTAN [Concomitant]
  4. SINGULAIR [Concomitant]
  5. PANTOPRAZOLE [Concomitant]
  6. PLAQUENIL [Concomitant]
  7. BACLOFEN [Concomitant]
  8. ALLERGY SHOTS [Concomitant]
  9. BYSTOLIC [Concomitant]
  10. VIT A [Concomitant]
  11. PROVIGIL [Concomitant]
  12. VIT D [Concomitant]
  13. VIT B COMPLEX [Concomitant]
  14. ASPIRIN [Concomitant]

REACTIONS (3)
  - Paraesthesia [Recovered/Resolved]
  - Flushing [Unknown]
  - Pruritus [Recovered/Resolved]
